FAERS Safety Report 5902064-2 (Version None)
Quarter: 2008Q3

REPORT INFORMATION
  Report Type: 
  Country: None (occurrence: None)
  Receive Date: 20080929
  Receipt Date: 20080917
  Transmission Date: 20090109
  Serious: Yes (Other)
  Sender: FDA-Public Use
  Company Number: US-PFIZER INC-2007085797

PATIENT
  Sex: Male
  Weight: 93 kg

DRUGS (6)
  1. SUTENT [Suspect]
     Indication: METASTATIC RENAL CELL CARCINOMA
     Route: 048
     Dates: start: 20070608
  2. PROSCAR [Concomitant]
     Dosage: DAILY DOSE:5MG
  3. STOOL SOFTENER [Concomitant]
  4. MULTI-VITAMINS [Concomitant]
     Dosage: DAILY DOSE:300MG
  5. CALCIUM [Concomitant]
  6. NASONEX [Concomitant]

REACTIONS (5)
  - DERMATITIS ACNEIFORM [None]
  - EYELID OEDEMA [None]
  - GASTROOESOPHAGEAL REFLUX DISEASE [None]
  - PERIORBITAL OEDEMA [None]
  - SWELLING [None]
